FAERS Safety Report 19881119 (Version 2)
Quarter: 2021Q4

REPORT INFORMATION
  Report Type: Spontaneous
  Country: US (occurrence: US)
  Receive Date: 20210924
  Receipt Date: 20211015
  Transmission Date: 20220303
  Serious: No
  Sender: FDA-Public Use
  Company Number: US-PFIZER INC-2021470042

PATIENT
  Age: 52 Year

DRUGS (10)
  1. DIAZEPAM [Suspect]
     Active Substance: DIAZEPAM
  2. GABAPENTIN [Suspect]
     Active Substance: GABAPENTIN
  3. LYRICA [Suspect]
     Active Substance: PREGABALIN
  4. MEDROL [Suspect]
     Active Substance: METHYLPREDNISOLONE
  5. CLARINEX [Suspect]
     Active Substance: DESLORATADINE
  6. EDARBI [Suspect]
     Active Substance: AZILSARTAN KAMEDOXOMIL
  7. CEFIXIME [Suspect]
     Active Substance: CEFIXIME
  8. HYDROCHLOROTHIAZIDE [Suspect]
     Active Substance: HYDROCHLOROTHIAZIDE
  9. PHENERGAN [Suspect]
     Active Substance: PROMETHAZINE HYDROCHLORIDE
  10. PROCHLORPERAZINE [Suspect]
     Active Substance: PROCHLORPERAZINE

REACTIONS (1)
  - Drug hypersensitivity [Unknown]
